FAERS Safety Report 12207951 (Version 2)
Quarter: 2016Q2

REPORT INFORMATION
  Report Type: Report from Study
  Country: US (occurrence: US)
  Receive Date: 20160324
  Receipt Date: 20160422
  Transmission Date: 20160815
  Serious: Yes (Other)
  Sender: FDA-Public Use
  Company Number: US-GILEAD-2016-0204903

PATIENT
  Age: 69 Year
  Sex: Male
  Weight: 98.87 kg

DRUGS (19)
  1. ZYRTEC [Concomitant]
     Active Substance: CETIRIZINE HYDROCHLORIDE
  2. DIGOX                              /00017701/ [Concomitant]
  3. LOMAX                              /00661202/ [Concomitant]
  4. XARELTO [Concomitant]
     Active Substance: RIVAROXABAN
  5. NEXIUM [Concomitant]
     Active Substance: ESOMEPRAZOLE MAGNESIUM
  6. ALLOPURINOL. [Concomitant]
     Active Substance: ALLOPURINOL
  7. METFORMIN [Concomitant]
     Active Substance: METFORMIN HYDROCHLORIDE
  8. LIPITOR [Concomitant]
     Active Substance: ATORVASTATIN CALCIUM
  9. ASPIRIN                            /00002701/ [Concomitant]
     Active Substance: ASPIRIN
  10. AMBRISENTAN [Suspect]
     Active Substance: AMBRISENTAN
     Indication: PRODUCT USED FOR UNKNOWN INDICATION
     Dosage: 5 MG, QD
     Route: 048
     Dates: start: 20160201
  11. CLOBETASOL [Concomitant]
     Active Substance: CLOBETASOL
  12. GLIPIZIDE. [Concomitant]
     Active Substance: GLIPIZIDE
  13. LISINOPRIL. [Concomitant]
     Active Substance: LISINOPRIL
  14. TADALAFIL [Concomitant]
     Active Substance: TADALAFIL
  15. OXYGEN. [Concomitant]
     Active Substance: OXYGEN
  16. TRIAMCINOLONE [Concomitant]
     Active Substance: TRIAMCINOLONE
  17. ALFUZOSIN [Concomitant]
     Active Substance: ALFUZOSIN
  18. JANUVIA [Concomitant]
     Active Substance: SITAGLIPTIN PHOSPHATE
  19. LASIX [Concomitant]
     Active Substance: FUROSEMIDE

REACTIONS (8)
  - Syncope [Recovered/Resolved]
  - Weight increased [Unknown]
  - Hypotension [Unknown]
  - Overdose [Recovered/Resolved]
  - Fall [Recovered/Resolved]
  - Presyncope [Recovered/Resolved]
  - Drug dose omission [Recovered/Resolved]
  - Oedema peripheral [Unknown]

NARRATIVE: CASE EVENT DATE: 20160206
